FAERS Safety Report 7102886-9 (Version None)
Quarter: 2010Q4

REPORT INFORMATION
  Report Type: 
  Country: None (occurrence: None)
  Receive Date: 20101109
  Receipt Date: 20101026
  Transmission Date: 20110411
  Serious: Yes (Other)
  Sender: FDA-Public Use
  Company Number: 238941

PATIENT
  Age: 37 Year
  Sex: Female
  Weight: 61.2356 kg

DRUGS (1)
  1. ADVANCED FIRMING + ANTI WRINKLE MOISTURE NIGHT CREAM [Suspect]
     Indication: SKIN WRINKLING
     Dosage: APPLICATION, TOPICAL, SINGLE
     Route: 061
     Dates: start: 20101023, end: 20101023

REACTIONS (3)
  - APPLICATION SITE HYPERSENSITIVITY [None]
  - CONDITION AGGRAVATED [None]
  - SKIN WRINKLING [None]
